FAERS Safety Report 16297863 (Version 1)
Quarter: 2019Q2

REPORT INFORMATION
  Report Type: Spontaneous
  Country: US (occurrence: US)
  Receive Date: 20190510
  Receipt Date: 20190510
  Transmission Date: 20190711
  Serious: No
  Sender: FDA-Public Use
  Company Number: US-ELI_LILLY_AND_COMPANY-US201905002902

PATIENT
  Sex: Male

DRUGS (2)
  1. HUMALOG [Suspect]
     Active Substance: INSULIN LISPRO
     Indication: TYPE 2 DIABETES MELLITUS
     Dosage: UNK UNK, PRN
     Route: 058
     Dates: start: 201811
  2. TRESIBA [Concomitant]
     Active Substance: INSULIN DEGLUDEC
     Indication: TYPE 2 DIABETES MELLITUS
     Dosage: 15 INTERNATIONAL UNIT, EACH MORNING
     Route: 065

REACTIONS (5)
  - Appetite disorder [Unknown]
  - Blood glucose increased [Unknown]
  - Drug ineffective [Unknown]
  - Blood glucose decreased [Unknown]
  - Incorrect product administration duration [Unknown]
